FAERS Safety Report 6214223-2 (Version None)
Quarter: 2009Q2

REPORT INFORMATION
  Report Type: 
  Country: None (occurrence: None)
  Receive Date: 20090604
  Receipt Date: 20071003
  Transmission Date: 20091009
  Serious: Yes (Other)
  Sender: FDA-Public Use
  Company Number: US-ASTRAZENECA-2007UW18696

PATIENT
  Age: 14866 Day
  Sex: Male
  Weight: 82.1 kg

DRUGS (13)
  1. SEROQUEL [Suspect]
     Indication: SCHIZOPHRENIA
     Dosage: 100 MG - 300 MG
     Route: 048
     Dates: start: 20020101, end: 20040101
  2. SEROQUEL [Suspect]
     Dosage: 100-600 MG
     Route: 048
     Dates: start: 20030303
  3. ABILIFY [Concomitant]
     Dosage: 15 MG - 30 MG
     Dates: start: 20020101, end: 20030101
  4. HALDOL [Concomitant]
     Dates: start: 20030101, end: 20030101
  5. NAVANE [Concomitant]
     Dates: start: 20010101, end: 20030101
  6. DEPAKOTE [Concomitant]
     Dosage: 750-1000 MG
     Route: 048
  7. LOPID [Concomitant]
     Route: 048
  8. COGENTIN [Concomitant]
     Route: 048
  9. ATIVAN [Concomitant]
     Route: 048
  10. KLONOPIN [Concomitant]
     Route: 048
  11. TRAZODONE HCL [Concomitant]
     Route: 048
  12. GLYBURIDE [Concomitant]
     Route: 048
  13. METFORMIN HYDROCHLORIDE [Concomitant]
     Route: 048

REACTIONS (3)
  - DIABETES MELLITUS [None]
  - DIABETIC NEUROPATHY [None]
  - HYPOGLYCAEMIA [None]
